FAERS Safety Report 19462820 (Version 1)
Quarter: 2021Q2

REPORT INFORMATION
  Report Type: Other
  Country: DE (occurrence: DE)
  Receive Date: 20210625
  Receipt Date: 20210625
  Transmission Date: 20210717
  Serious: Yes (Hospitalization)
  Sender: FDA-Public Use
  Company Number: DE-ROCHE-2848380

PATIENT
  Age: 47 Year
  Sex: Female

DRUGS (3)
  1. ATEZOLIZUMAB. [Suspect]
     Active Substance: ATEZOLIZUMAB
     Indication: BREAST CANCER
     Dosage: ON 10/FEB/2021, RECEIVED LAST DOSE (840 MG) OF ATEZOLIZUMAB BEFORE THE EVEN
     Route: 065
     Dates: start: 20200902
  2. PARACETAMOL [Concomitant]
     Active Substance: ACETAMINOPHEN
     Route: 048
     Dates: start: 20190728
  3. NAB?PACLITAXEL [Suspect]
     Active Substance: PACLITAXEL
     Indication: BREAST CANCER
     Dosage: ON 10/FEB/2021, RECEIVED LAST DOSE (185 MG) OF NAB?PACLITAXEL BEFORE THE EVENT
     Route: 065
     Dates: start: 20200902

REACTIONS (1)
  - Oedematous pancreatitis [Recovering/Resolving]

NARRATIVE: CASE EVENT DATE: 20210215
